FAERS Safety Report 5085240-3 (Version None)
Quarter: 2006Q3

REPORT INFORMATION
  Report Type: 
  Country: None (occurrence: None)
  Receive Date: 20060822
  Receipt Date: 20060809
  Transmission Date: 20061208
  Serious: Yes (Hospitalization, Other)
  Sender: FDA-Public Use
  Company Number: US-AMGEN-STX189558

PATIENT
  Sex: Female

DRUGS (2)
  1. ENBREL [Suspect]
     Indication: RHEUMATOID ARTHRITIS
     Route: 058
     Dates: start: 20010601
  2. AZULFIDINE [Concomitant]
     Route: 048
     Dates: start: 20050101

REACTIONS (4)
  - ANKLE OPERATION [None]
  - DIABETES MELLITUS [None]
  - VISION BLURRED [None]
  - VITREOUS FLOATERS [None]
